FAERS Safety Report 21936775 (Version 2)
Quarter: 2023Q1

REPORT INFORMATION
  Report Type: Spontaneous
  Country: US (occurrence: US)
  Receive Date: 20230201
  Receipt Date: 20230213
  Transmission Date: 20230418
  Serious: No
  Sender: FDA-Public Use
  Company Number: US-PFIZER INC-202300046272

PATIENT
  Age: 78 Year
  Sex: Male

DRUGS (2)
  1. LORAZEPAM [Suspect]
     Active Substance: LORAZEPAM
     Indication: Dementia
     Dosage: 0.5MG EVERY EVENING; ONLY GIVES HIM HALF, SO 0.25MG UNLESS HE NEEDS THE ADDITIONAL 0.25MG
     Dates: start: 202205
  2. LORAZEPAM [Suspect]
     Active Substance: LORAZEPAM
     Indication: Agitation

REACTIONS (2)
  - Weight decreased [Unknown]
  - Off label use [Unknown]

NARRATIVE: CASE EVENT DATE: 20220101
